FAERS Safety Report 12333007 (Version 1)
Quarter: 2016Q2

REPORT INFORMATION
  Report Type: Spontaneous
  Country: US (occurrence: US)
  Receive Date: 20160504
  Receipt Date: 20160504
  Transmission Date: 20160815
  Serious: No
  Sender: FDA-Public Use
  Company Number: US-ROCHE-1678592

PATIENT
  Sex: Male
  Weight: 94.43 kg

DRUGS (1)
  1. ESBRIET [Suspect]
     Active Substance: PIRFENIDONE
     Indication: IDIOPATHIC PULMONARY FIBROSIS
     Dosage: 3 CAPS ORAL THRICE DAILY
     Route: 048
     Dates: start: 20141120

REACTIONS (4)
  - Decreased appetite [Unknown]
  - Vomiting [Unknown]
  - Weight decreased [Unknown]
  - Cough [Unknown]
